FAERS Safety Report 17900934 (Version 2)
Quarter: 2021Q1

REPORT INFORMATION
  Report Type: Spontaneous
  Country: US (occurrence: US)
  Receive Date: 20200616
  Receipt Date: 20210119
  Transmission Date: 20210419
  Serious: No
  Sender: FDA-Public Use
  Company Number: US-SA-2020SA152992

PATIENT
  Age: 71 Year
  Sex: Female

DRUGS (8)
  1. PRALUENT [Suspect]
     Active Substance: ALIROCUMAB
     Dosage: 75 MG, Q2W
     Route: 058
     Dates: start: 202007
  2. HUMULIN 70/30 [Concomitant]
     Active Substance: INSULIN HUMAN
  3. ASPIRIN [ACETYLSALICYLIC ACID] [Concomitant]
     Active Substance: ASPIRIN
     Dosage: UNK UNK, QD
  4. PRALUENT [Suspect]
     Active Substance: ALIROCUMAB
     Indication: HYPERCHOLESTEROLAEMIA
     Dosage: 75 MG, QOW
     Dates: start: 20200327, end: 2020
  5. ELIQUIS [Concomitant]
     Active Substance: APIXABAN
  6. TRULICITY [Concomitant]
     Active Substance: DULAGLUTIDE
  7. MULTIVITAMINS [VITAMINS NOS] [Concomitant]
     Active Substance: VITAMINS
  8. LISINOPRIL. [Concomitant]
     Active Substance: LISINOPRIL
     Indication: HYPERTENSION

REACTIONS (9)
  - Peripheral swelling [Unknown]
  - Fatigue [Unknown]
  - Musculoskeletal stiffness [Not Recovered/Not Resolved]
  - Sensory disturbance [Not Recovered/Not Resolved]
  - Faeces discoloured [Unknown]
  - Balance disorder [Not Recovered/Not Resolved]
  - Pruritus [Unknown]
  - Condition aggravated [Unknown]
  - Skin indentation [Unknown]

NARRATIVE: CASE EVENT DATE: 2020
